FAERS Safety Report 24652229 (Version 1)
Quarter: 2024Q4

REPORT INFORMATION
  Report Type: Spontaneous
  Country: US (occurrence: US)
  Receive Date: 20241122
  Receipt Date: 20241122
  Transmission Date: 20250115
  Serious: Yes (Life-Threatening, Hospitalization)
  Sender: MYLAN
  Company Number: US-MYLANLABS-2024M1103717

PATIENT
  Age: 37 Year
  Sex: Female

DRUGS (8)
  1. MAGNESIUM SULFATE [Suspect]
     Active Substance: MAGNESIUM SULFATE
     Indication: Pre-eclampsia
     Dosage: 6 GRAM, INTRAVENOUS BOLUS
     Route: 042
  2. MAGNESIUM SULFATE [Suspect]
     Active Substance: MAGNESIUM SULFATE
     Indication: Gestational hypertension
     Dosage: UNK; 20 G/500 ML AT 25 ML/HR
     Route: 042
  3. NIFEDIPINE [Suspect]
     Active Substance: NIFEDIPINE
     Indication: Pre-eclampsia
     Dosage: 60 MILLIGRAM, BID
     Route: 048
  4. NIFEDIPINE [Suspect]
     Active Substance: NIFEDIPINE
     Indication: Gestational hypertension
  5. LABETALOL [Suspect]
     Active Substance: LABETALOL
     Indication: Pre-eclampsia
     Dosage: 20 MILLIGRAM
     Route: 042
  6. LABETALOL [Suspect]
     Active Substance: LABETALOL
     Indication: Gestational hypertension
  7. LABETALOL [Suspect]
     Active Substance: LABETALOL
     Indication: Pre-eclampsia
     Dosage: 200 MILLIGRAM, BID
     Route: 048
  8. LABETALOL [Suspect]
     Active Substance: LABETALOL
     Indication: Gestational hypertension

REACTIONS (2)
  - Drug ineffective [Unknown]
  - Maternal exposure during pregnancy [Recovered/Resolved]
